FAERS Safety Report 9269262 (Version 1)
Quarter: 2013Q2

REPORT INFORMATION
  Report Type: Spontaneous
  Country: US (occurrence: US)
  Receive Date: 20130503
  Receipt Date: 20130503
  Transmission Date: 20140414
  Serious: No
  Sender: FDA-Public Use
  Company Number: US-PFIZER INC-2013134637

PATIENT
  Sex: Female

DRUGS (1)
  1. CELEBREX [Suspect]
     Indication: OSTEOARTHRITIS
     Dosage: UNK

REACTIONS (5)
  - Constipation [Unknown]
  - Dyspepsia [Unknown]
  - Abdominal discomfort [Unknown]
  - Flatulence [Unknown]
  - Nausea [Unknown]
